FAERS Safety Report 19724785 (Version 3)
Quarter: 2021Q3

REPORT INFORMATION
  Report Type: Report from Study
  Country: IT (occurrence: IT)
  Receive Date: 20210819
  Receipt Date: 20210830
  Transmission Date: 20211014
  Serious: Yes (Hospitalization)
  Sender: FDA-Public Use
  Company Number: IT-ROCHE-2891586

PATIENT
  Age: 50 Year
  Sex: Female
  Weight: 60 kg

DRUGS (10)
  1. ATEZOLIZUMAB. [Suspect]
     Active Substance: ATEZOLIZUMAB
     Indication: BREAST CANCER
     Dosage: DATE OF MOST RECENT DOSE OF ATEZOLIZUMAB (1200 MG) PRIOR TO SAE ONSET: 16/JUL/2021
     Route: 041
     Dates: start: 20210409, end: 20210819
  2. PARACETAMOL/CODEINE [Concomitant]
     Active Substance: ACETAMINOPHEN\CODEINE PHOSPHATE
     Indication: PAIN
     Dates: start: 20210330, end: 20210809
  3. PERTUZUMAB. [Suspect]
     Active Substance: PERTUZUMAB
     Indication: BREAST CANCER
     Dosage: DATE OF MOST RECENT DOSE OF PERTUZUMAB (420 MG) PRIOR TO SAE ONSET: 16/JUL/2021
     Route: 042
     Dates: start: 20210409
  4. PARACETAMOL AND IBUPROFEN [Concomitant]
     Indication: PAIN
     Dates: start: 20210809, end: 20210812
  5. TRASTUZUMAB. [Suspect]
     Active Substance: TRASTUZUMAB
     Dosage: DATE OF MOST RECENT DOSE OF TRASTUZUMAB (348 MG) PRIOR TO SAE ONSET: 16/JUL/2021?6 MG/KG MAINTAINENC
     Route: 041
  6. PACLITAXEL. [Suspect]
     Active Substance: PACLITAXEL
     Indication: BREAST CANCER
     Dosage: DATE OF MOST RECENT DOSE OF PACLITAXEL (130 MG) PRIOR TO SAE ONSET: 23JUL/2021
     Route: 042
     Dates: start: 20210409, end: 20210819
  7. CARBOPLATIN. [Suspect]
     Active Substance: CARBOPLATIN
     Indication: BREAST CANCER
     Dosage: DATE OF MOST RECENT DOSE OF CARBOPLATIN (180 MG) PRIOR TO SAE ONSET: 23JUL/2021
     Route: 042
     Dates: start: 20210409, end: 20210819
  8. PERTUZUMAB. [Suspect]
     Active Substance: PERTUZUMAB
     Dosage: DATE OF MOST RECENT DOSE OF PERTUZUMAB (420 MG) PRIOR TO SAE ONSET: 16/JUL/2021?420 MG MAINTAINENCE
     Route: 042
  9. PARACETAMOL [Concomitant]
     Active Substance: ACETAMINOPHEN
     Indication: PAIN
     Dates: start: 20210330, end: 20210809
  10. TRASTUZUMAB. [Suspect]
     Active Substance: TRASTUZUMAB
     Indication: BREAST CANCER
     Dosage: DATE OF MOST RECENT DOSE OF TRASTUZUMAB (348 MG) PRIOR TO SAE ONSET: 16/JUL/2021
     Route: 041
     Dates: start: 20210409

REACTIONS (1)
  - Renal failure [Recovering/Resolving]

NARRATIVE: CASE EVENT DATE: 20210812
